FAERS Safety Report 11659902 (Version 1)
Quarter: 2015Q4

REPORT INFORMATION
  Report Type: Spontaneous
  Country: US (occurrence: None)
  Receive Date: 20151023
  Receipt Date: 20151023
  Transmission Date: 20160304
  Serious: Yes (Disabling)
  Sender: FDA-Public Use
  Company Number: None

PATIENT
  Age: 43 Year
  Sex: Male
  Weight: 79.38 kg

DRUGS (12)
  1. FISH OIL [Concomitant]
     Active Substance: FISH OIL
  2. COCONUT OIL [Concomitant]
     Active Substance: COCONUT OIL
  3. D RIBOSE [Concomitant]
  4. MULTI VITAMIN [Concomitant]
     Active Substance: VITAMINS
  5. VITAMIN B COMPLEX [Concomitant]
     Active Substance: CYANOCOBALAMIN\DEXPANTHENOL\NIACINAMIDE\PYRIDOXINE HYDROCHLORIDE\RIBOFLAVIN 5^-PHOSPHATE SODIUM\THIAMINE HYDROCHLORIDE\VITAMIN B COMPLEX
  6. ALA [Concomitant]
  7. CREATINE [Concomitant]
     Active Substance: CREATINE
  8. MAGNESIUM [Concomitant]
     Active Substance: MAGNESIUM
  9. COENZYME Q10 [Concomitant]
     Active Substance: UBIDECARENONE
  10. AVELOX [Suspect]
     Active Substance: MOXIFLOXACIN HYDROCHLORIDE
     Indication: SINUSITIS
     Dosage: 6 PILLS
     Route: 048
     Dates: start: 20130425, end: 20130429
  11. BORON [Concomitant]
     Active Substance: BORON
  12. QUECERTIN [Concomitant]

REACTIONS (21)
  - Myalgia [None]
  - Muscle atrophy [None]
  - Pain in extremity [None]
  - Asthenia [None]
  - Arthralgia [None]
  - Anxiety [None]
  - Loss of employment [None]
  - Personality change [None]
  - Paraesthesia [None]
  - Immune system disorder [None]
  - Muscle spasms [None]
  - Depression [None]
  - Vitreous floaters [None]
  - Feeling cold [None]
  - Gastrointestinal disorder [None]
  - Tinnitus [None]
  - Impaired healing [None]
  - Arthropathy [None]
  - Fatigue [None]
  - Joint injury [None]
  - Photophobia [None]

NARRATIVE: CASE EVENT DATE: 20130425
